FAERS Safety Report 7406800-8 (Version None)
Quarter: 2011Q2

REPORT INFORMATION
  Report Type: 
  Country: None (occurrence: None)
  Receive Date: 20110411
  Receipt Date: 20110408
  Transmission Date: 20111010
  Serious: Yes (Life-Threatening, Hospitalization, Congenital Anomaly, Other)
  Sender: FDA-Public Use
  Company Number: GXKR2011DE01429

PATIENT
  Sex: Male
  Weight: 2.76 kg

DRUGS (3)
  1. INSULIN [Concomitant]
     Indication: GESTATIONAL DIABETES
     Dosage: MATERNAL DOSE UNK
     Route: 064
  2. OMEPRAZOLE [Suspect]
     Dosage: MATERNAL DOSE: 20 MG/DAY
     Route: 064
  3. FOLIC ACID [Concomitant]
     Dosage: MATERNAL DOSE UNK
     Route: 064

REACTIONS (10)
  - HYPOGLYCAEMIA NEONATAL [None]
  - DRUG EXPOSURE DURING PREGNANCY [None]
  - HAEMANGIOMA OF LIVER [None]
  - ATRIAL SEPTAL DEFECT [None]
  - PATENT DUCTUS ARTERIOSUS [None]
  - THROMBOCYTOPENIA NEONATAL [None]
  - HAEMANGIOMA CONGENITAL [None]
  - PERSISTENT FOETAL CIRCULATION [None]
  - HYPOTONIA NEONATAL [None]
  - NEONATAL RESPIRATORY DEPRESSION [None]
